FAERS Safety Report 17568448 (Version 4)
Quarter: 2020Q2

REPORT INFORMATION
  Report Type: Report from Study
  Country: US (occurrence: US)
  Receive Date: 20200321
  Receipt Date: 20200630
  Transmission Date: 20200713
  Serious: No
  Sender: FDA-Public Use
  Company Number: NVSC2020US076765

PATIENT
  Age: 49 Year
  Sex: Female

DRUGS (3)
  1. COSENTYX [Suspect]
     Active Substance: SECUKINUMAB
     Indication: PSORIASIS
     Dosage: 300 MG(ONCE WEEKLY FOR 5 WEEKS, THEN ONCE EVERY 4 WEEKS)
     Route: 058
     Dates: start: 20200114
  2. COSENTYX [Suspect]
     Active Substance: SECUKINUMAB
     Indication: PSORIASIS
     Dosage: 300 MG, QMO
     Route: 058
  3. COSENTYX [Suspect]
     Active Substance: SECUKINUMAB
     Indication: PSORIATIC ARTHROPATHY

REACTIONS (7)
  - Flushing [Unknown]
  - Headache [Unknown]
  - Pain [Unknown]
  - Nausea [Unknown]
  - Stress [Unknown]
  - Vomiting [Unknown]
  - Influenza [Recovered/Resolved]

NARRATIVE: CASE EVENT DATE: 20200119
